FAERS Safety Report 9397443 (Version 1)
Quarter: 2013Q2

REPORT INFORMATION
  Report Type: Spontaneous
  Country: GB (occurrence: None)
  Receive Date: 20130628
  Receipt Date: 20130628
  Transmission Date: 20140414
  Serious: Yes (Life-Threatening)
  Sender: FDA-Public Use
  Company Number: QR71221-02

PATIENT
  Age: 59 Year
  Sex: Male

DRUGS (7)
  1. GAMMAPLEX [Suspect]
     Indication: IMMUNE SYSTEM DISORDER
     Route: 042
     Dates: start: 20130611
  2. THYROXINE [Concomitant]
  3. AZITHROMYCIN [Concomitant]
  4. PREDNISOLONE [Concomitant]
  5. BISPHOSPHONATES [Concomitant]
  6. SERTIDE INHALER [Concomitant]
  7. DIABETES THERAPY AS NOVARAPID AND GLARGINE [Concomitant]

REACTIONS (4)
  - Chills [None]
  - Body temperature increased [None]
  - Blood pressure immeasurable [None]
  - Ear infection [None]
